FAERS Safety Report 13034070 (Version 1)
Quarter: 2016Q4

REPORT INFORMATION
  Report Type: Spontaneous
  Country: PL (occurrence: PL)
  Receive Date: 20161216
  Receipt Date: 20161216
  Transmission Date: 20170207
  Serious: Yes (Hospitalization)
  Sender: FDA-Public Use
  Company Number: PL-ROCHE-1868234

PATIENT
  Age: 68 Year
  Sex: Female

DRUGS (1)
  1. ACTILYSE [Suspect]
     Active Substance: ALTEPLASE
     Indication: ISCHAEMIC STROKE
     Route: 065

REACTIONS (5)
  - Aphasia [Unknown]
  - Hemiplegia [Unknown]
  - Disturbance in social behaviour [Unknown]
  - Epilepsy [Unknown]
  - Loss of consciousness [Unknown]
